FAERS Safety Report 6728537-0 (Version None)
Quarter: 2010Q2

REPORT INFORMATION
  Report Type: 
  Country: None (occurrence: None)
  Receive Date: 20100517
  Receipt Date: 20100508
  Transmission Date: 20101027
  Serious: Yes (Other)
  Sender: FDA-Public Use
  Company Number: US-ABBOTT-10P-163-0638597-00

PATIENT
  Sex: Female
  Weight: 83.536 kg

DRUGS (4)
  1. SYNTHROID [Suspect]
     Indication: HYPOTHYROIDISM
  2. SYNTHROID [Suspect]
  3. SYNTHROID [Suspect]
     Dates: start: 20100301
  4. SYNTHROID [Suspect]

REACTIONS (7)
  - ALOPECIA [None]
  - BLOOD THYROID STIMULATING HORMONE ABNORMAL [None]
  - HYPERTENSION [None]
  - JOINT INJURY [None]
  - POLYMENORRHOEA [None]
  - VERTIGO [None]
  - WEIGHT INCREASED [None]
